FAERS Safety Report 4895224-3 (Version None)
Quarter: 2006Q1

REPORT INFORMATION
  Report Type: 
  Country: None (occurrence: None)
  Receive Date: 20060130
  Receipt Date: 20051222
  Transmission Date: 20060701
  Serious: Yes (Hospitalization)
  Sender: FDA-Public Use
  Company Number: US-GLAXOSMITHKLINE-A0586852A

PATIENT
  Age: 45 Year
  Sex: Female

DRUGS (4)
  1. IMITREX [Suspect]
     Indication: MIGRAINE
     Dosage: 6MG SINGLE DOSE
     Route: 030
     Dates: start: 20050528, end: 20050528
  2. IMITREX [Suspect]
     Dosage: 50MG AS REQUIRED
     Route: 048
     Dates: start: 20050501
  3. VISTARIL [Concomitant]
     Indication: MIGRAINE
     Dosage: 25MG SINGLE DOSE
     Route: 030
  4. MECLIZINE [Concomitant]

REACTIONS (19)
  - ABNORMAL BEHAVIOUR [None]
  - AMNESIA [None]
  - ANAEMIA [None]
  - ANEURYSM [None]
  - BRAIN DAMAGE [None]
  - CONVULSION [None]
  - DIABETES MELLITUS NON-INSULIN-DEPENDENT [None]
  - DIABETIC KETOACIDOSIS [None]
  - DRUG INEFFECTIVE [None]
  - HEPATITIS C [None]
  - HYPERGLYCAEMIA [None]
  - HYPOTHYROIDISM [None]
  - LIVER FUNCTION TEST ABNORMAL [None]
  - NERVOUS SYSTEM DISORDER [None]
  - PANCYTOPENIA [None]
  - PITUITARY ENLARGEMENT [None]
  - SPEECH DISORDER [None]
  - URINARY INCONTINENCE [None]
  - VOMITING [None]
